FAERS Safety Report 4786528-3 (Version None)
Quarter: 2005Q3

REPORT INFORMATION
  Report Type: 
  Country: None (occurrence: None)
  Receive Date: 20050927
  Receipt Date: 20050801
  Transmission Date: 20060218
  Serious: No
  Sender: FDA-Public Use
  Company Number: USA0507103003

PATIENT
  Age: 63 Year
  Sex: Female

DRUGS (3)
  1. STRATTERA [Suspect]
     Indication: ATTENTION DEFICIT/HYPERACTIVITY DISORDER
     Dosage: 60 MG/2 DAY
     Dates: start: 20031101
  2. LITHIUM CARBONATE [Concomitant]
  3. EFFEXOR XR [Concomitant]

REACTIONS (2)
  - PRESCRIBED OVERDOSE [None]
  - TARDIVE DYSKINESIA [None]
